FAERS Safety Report 16907196 (Version 1)
Quarter: 2019Q4

REPORT INFORMATION
  Report Type: Spontaneous
  Country: US (occurrence: US)
  Receive Date: 20191011
  Receipt Date: 20191011
  Transmission Date: 20200122
  Serious: No
  Sender: FDA-Public Use
  Company Number: US-UNITED THERAPEUTICS-UNT-2019-015446

PATIENT
  Age: 72 Year
  Sex: Female

DRUGS (3)
  1. ORENITRAM [Suspect]
     Active Substance: TREPROSTINIL
     Dosage: 0.125 MG, BID
     Route: 048
     Dates: start: 20190914
  2. ORENITRAM [Suspect]
     Active Substance: TREPROSTINIL
     Indication: PULMONARY ARTERIAL HYPERTENSION
     Dosage: 0.125 MG, TID
     Route: 048
     Dates: start: 20190909
  3. ORENITRAM [Suspect]
     Active Substance: TREPROSTINIL
     Dosage: 0.50 MG, TID
     Route: 048
     Dates: start: 20190909, end: 20190910

REACTIONS (3)
  - Diarrhoea [Recovering/Resolving]
  - Product dose omission [Unknown]
  - Nausea [Recovering/Resolving]

NARRATIVE: CASE EVENT DATE: 201909
